FAERS Safety Report 15656138 (Version 16)
Quarter: 2021Q3

REPORT INFORMATION
  Report Type: Report from Study
  Country: TW (occurrence: TW)
  Receive Date: 20181126
  Receipt Date: 20210714
  Transmission Date: 20211014
  Serious: Yes (Death, Life-Threatening, Hospitalization)
  Sender: FDA-Public Use
  Company Number: TW-ROCHE-2207302

PATIENT
  Age: 69 Year
  Sex: Male
  Weight: 83 kg

DRUGS (48)
  1. ACTEIN [Concomitant]
     Indication: COUGH
     Route: 048
     Dates: start: 20181030, end: 20181105
  2. ONEALFA [Concomitant]
     Active Substance: ALFACALCIDOL
     Indication: HYPOCALCAEMIA
     Dosage: 1 TABLET?STRENGTH: 1 MCG/TAB
     Route: 048
     Dates: start: 20181116
  3. CALCIUM CHLORIDE. [Concomitant]
     Active Substance: CALCIUM CHLORIDE
     Dosage: 10.8 OTHER?STRENGTH: 5.4 MEQ/20 ML /AMP)
     Route: 042
     Dates: start: 20181120
  4. BCG VACCINE [Concomitant]
     Active Substance: BCG VACCINE
     Indication: SEDATION
     Dosage: 200 OTHER?STRENGTH: 4 MCG/1 ML /AMP
     Route: 042
     Dates: start: 20181118
  5. DORMICUM [Concomitant]
     Dosage: 15 MG /3 ML/AMP
     Route: 042
     Dates: start: 20181126, end: 20181128
  6. POTASSIUM CHLORIDE. [Concomitant]
     Active Substance: POTASSIUM CHLORIDE
     Indication: HAEMODIALYSIS
     Route: 042
     Dates: start: 20181117
  7. ROLIKAN [Concomitant]
     Dosage: 250 ML/BTL
     Route: 042
     Dates: start: 20181127, end: 20181127
  8. NINCORT [Concomitant]
     Indication: MUCOSAL INFLAMMATION
     Dosage: 0.1% 6 G /TUBE
     Route: 061
     Dates: start: 20181118
  9. TIRAGOLUMAB. [Suspect]
     Active Substance: TIRAGOLUMAB
     Indication: NON-SMALL CELL LUNG CANCER
     Dosage: MOST RECENT DOSE AT 13.17
     Route: 042
     Dates: start: 20181008
  10. DUTASTERIDE. [Concomitant]
     Active Substance: DUTASTERIDE
     Indication: BENIGN PROSTATIC HYPERPLASIA
     Route: 048
  11. DIPHENHYDRAMINE HCL [Concomitant]
     Active Substance: DIPHENHYDRAMINE HYDROCHLORIDE
     Dosage: 30 MG/1 ML/ AMP?PROPHYLAXIS FOR SIDE EFFECT OF BLOOD TRANSFUSION
     Route: 042
     Dates: start: 20181029, end: 20181029
  12. ASCORBIC ACID. [Concomitant]
     Active Substance: ASCORBIC ACID
     Indication: HYPOCALCAEMIA
     Dosage: STRENGTH: 100 MG/2 ML /AMP)
     Route: 042
     Dates: start: 20181114, end: 20181116
  13. CALCIUM CHLORIDE. [Concomitant]
     Active Substance: CALCIUM CHLORIDE
     Dosage: 54 OTHER?STRENGTH: 5.4 MEQ/20 ML /AMP)
     Route: 042
     Dates: start: 20181115, end: 20181116
  14. C.B. OINTMENT [Concomitant]
     Indication: DERMATITIS ALLERGIC
     Route: 061
     Dates: start: 20180925, end: 20181002
  15. MEDICON [DEXTROMETHORPHAN HYDROBROMIDE] [Concomitant]
     Active Substance: DEXTROMETHORPHAN HYDROBROMIDE
     Indication: UPPER RESPIRATORY TRACT INFECTION
     Route: 048
     Dates: start: 20181019, end: 20181024
  16. ALPRALINE [Concomitant]
     Active Substance: ALPRAZOLAM
     Route: 048
     Dates: start: 20181113, end: 20181113
  17. HEPARIN SODIUM. [Concomitant]
     Active Substance: HEPARIN SODIUM
     Route: 042
     Dates: start: 20181121, end: 20181121
  18. PARAMOL (TAIWAN) [Concomitant]
     Dosage: RECEIVED ON 29/OCT/2018?RECEIVED FROM 13/NOV/2018 TO 28/NOV/2018
     Route: 048
     Dates: start: 20181019, end: 20181024
  19. DOXAZOSIN MESYLATE. [Concomitant]
     Active Substance: DOXAZOSIN MESYLATE
     Indication: BENIGN PROSTATIC HYPERPLASIA
     Route: 048
  20. AUGMENTINE [Concomitant]
     Active Substance: AMOXICILLIN\CLAVULANATE POTASSIUM
     Indication: UPPER RESPIRATORY TRACT INFECTION
     Route: 048
     Dates: start: 20181019, end: 20181024
  21. ACTEIN [Concomitant]
     Route: 048
     Dates: start: 20181113, end: 20181113
  22. CALCIUM CHLORIDE. [Concomitant]
     Active Substance: CALCIUM CHLORIDE
     Indication: HYPOCALCAEMIA
     Dosage: 10.8 OTHER?STRENGTH: 5.4 MEQ/20 ML /AMP)
     Route: 042
     Dates: start: 20181114, end: 20181114
  23. HEPARIN SODIUM. [Concomitant]
     Active Substance: HEPARIN SODIUM
     Route: 042
     Dates: start: 20181113, end: 20181113
  24. ALLEGRA [Concomitant]
     Active Substance: FEXOFENADINE HYDROCHLORIDE
     Indication: UPPER RESPIRATORY TRACT INFECTION
     Route: 048
     Dates: start: 20180919, end: 20181024
  25. XYZAL [Concomitant]
     Active Substance: LEVOCETIRIZINE DIHYDROCHLORIDE
     Indication: RHINORRHOEA
     Route: 048
     Dates: start: 20180929
  26. DORMICUM [Concomitant]
     Indication: SEDATION
     Dosage: 15 MG /3 ML/AMOP
     Route: 042
     Dates: start: 20181116, end: 20181116
  27. DORMICUM [Concomitant]
     Dosage: 15 MG /3 ML/AMP
     Route: 042
     Dates: start: 20181126, end: 20181128
  28. ROLIKAN [Concomitant]
     Indication: HAEMODIALYSIS
     Dosage: 250 ML/BTL
     Route: 042
     Dates: start: 20181114, end: 20181114
  29. ATEZOLIZUMAB. [Suspect]
     Active Substance: ATEZOLIZUMAB
     Indication: NON-SMALL CELL LUNG CANCER
     Dosage: DATE OF MOST RECENT DOSE WAS 29/OCT/2018 AT 10.30
     Route: 041
     Dates: start: 20181008
  30. PARAMOL (TAIWAN) [Concomitant]
     Indication: UPPER RESPIRATORY TRACT INFECTION
     Route: 048
     Dates: start: 20181018
  31. XYZAL [Concomitant]
     Active Substance: LEVOCETIRIZINE DIHYDROCHLORIDE
     Route: 048
     Dates: start: 20181029, end: 20181119
  32. CHLORHEXIDINE GLUCONATE. [Concomitant]
     Active Substance: CHLORHEXIDINE GLUCONATE
     Indication: INFECTION PROPHYLAXIS
     Dosage: STRENGTH: 0.12% 250 ML /BTL
     Route: 048
     Dates: start: 20181117
  33. ANXICAM [Concomitant]
     Dosage: 2 MG/1 ML
     Route: 042
     Dates: start: 20181119, end: 20181119
  34. DORMICUM [Concomitant]
     Dosage: 15 MG /3 ML/AMOP
     Route: 042
     Dates: start: 20181120, end: 20181120
  35. PARAMOL (TAIWAN) [Concomitant]
     Indication: PAIN
     Route: 048
     Dates: start: 20180919, end: 20181012
  36. LEVOCETIRIZINE [Concomitant]
     Active Substance: LEVOCETIRIZINE
     Route: 048
     Dates: start: 20181008, end: 20181013
  37. XYZAL [Concomitant]
     Active Substance: LEVOCETIRIZINE DIHYDROCHLORIDE
     Indication: RASH
     Route: 048
     Dates: start: 20181001, end: 20181006
  38. DIPHENHYDRAMINE HCL [Concomitant]
     Active Substance: DIPHENHYDRAMINE HYDROCHLORIDE
     Indication: PROPHYLAXIS
     Dosage: 30 MG/1 ML/ AMP?PROPHYLAXIS FOR SIDE EFFECT OF BLOOD TRANSFUSION
     Route: 042
     Dates: start: 20181113
  39. FENTANYL CITRATE. [Concomitant]
     Active Substance: FENTANYL CITRATE
     Indication: SEDATION
     Dosage: 0.5MG/10 ML
     Route: 042
     Dates: start: 20181118
  40. POTASSIUM CHLORIDE. [Concomitant]
     Active Substance: POTASSIUM CHLORIDE
     Route: 042
     Dates: start: 20181127, end: 20181128
  41. HEPARIN SODIUM. [Concomitant]
     Active Substance: HEPARIN SODIUM
     Route: 042
     Dates: start: 20181116, end: 20181116
  42. LEVOCETIRIZINE [Concomitant]
     Active Substance: LEVOCETIRIZINE
     Indication: RHINORRHOEA
     Route: 048
     Dates: start: 20181001, end: 20181006
  43. INDOMETHACIN. [Concomitant]
     Active Substance: INDOMETHACIN
     Indication: PAIN IN EXTREMITY
     Dosage: 1% 20 G /TUBE
     Route: 061
     Dates: start: 20181104, end: 20181112
  44. ANXICAM [Concomitant]
     Indication: SEDATION
     Dosage: 2 MG/1 ML
     Route: 042
     Dates: start: 20181117, end: 20181117
  45. POTASSIUM CHLORIDE. [Concomitant]
     Active Substance: POTASSIUM CHLORIDE
     Route: 042
     Dates: start: 20181114, end: 20181116
  46. FRESOFOL [Concomitant]
     Indication: SEDATION
     Dosage: 20 MG /20 ML/ AMP
     Route: 042
     Dates: start: 20181120
  47. RELAXIN [Concomitant]
     Active Substance: RELAXIN PORCINE
     Indication: SEDATION
     Route: 042
     Dates: start: 20181123, end: 20181123
  48. HEPARIN SODIUM. [Concomitant]
     Active Substance: HEPARIN SODIUM
     Route: 042
     Dates: start: 20181114, end: 20181114

REACTIONS (3)
  - Atrial fibrillation [Not Recovered/Not Resolved]
  - Epstein-Barr virus infection reactivation [Fatal]
  - Infusion related reaction [Recovered/Resolved]

NARRATIVE: CASE EVENT DATE: 20181029
